FAERS Safety Report 7917820-9 (Version None)
Quarter: 2011Q4

REPORT INFORMATION
  Report Type: 
  Country: None (occurrence: None)
  Receive Date: 20111116
  Receipt Date: 20111103
  Transmission Date: 20120403
  Serious: Yes (Other)
  Sender: FDA-Public Use
  Company Number: PHEH2011US00721

PATIENT
  Sex: Female
  Weight: 77.51 kg

DRUGS (1)
  1. EXJADE [Suspect]
     Indication: IRON METABOLISM DISORDER
     Dosage: 1000 MG, DAILY
     Route: 048
     Dates: start: 20110503

REACTIONS (4)
  - MALAISE [None]
  - ASTHMA [None]
  - DIARRHOEA [None]
  - NASOPHARYNGITIS [None]
